FAERS Safety Report 5279045-8 (Version None)
Quarter: 2007Q1

REPORT INFORMATION
  Report Type: 
  Country: None (occurrence: None)
  Receive Date: 20070327
  Receipt Date: 20070327
  Transmission Date: 20070707
  Serious: Yes (Other)
  Sender: FDA-Public Use
  Company Number: None

PATIENT
  Age: 9 Year
  Sex: Male
  Weight: 124.7392 kg

DRUGS (1)
  1. RISPERDAL [Suspect]
     Indication: BIPOLAR DISORDER
     Dosage: DAILY
     Dates: start: 19930208, end: 20070326

REACTIONS (4)
  - GLUCOSE TOLERANCE IMPAIRED [None]
  - GYNAECOMASTIA [None]
  - TARDIVE DYSKINESIA [None]
  - WEIGHT INCREASED [None]
